FAERS Safety Report 7950301-5 (Version None)
Quarter: 2011Q4

REPORT INFORMATION
  Report Type: 
  Country: None (occurrence: None)
  Receive Date: 20111130
  Receipt Date: 20111121
  Transmission Date: 20120403
  Serious: Yes (Other)
  Sender: FDA-Public Use
  Company Number: CA-ASTRAZENECA-2011SE71020

PATIENT
  Age: 70 Year
  Sex: Female

DRUGS (5)
  1. CRESTOR [Suspect]
     Indication: BLOOD CHOLESTEROL INCREASED
     Route: 048
     Dates: start: 20110201
  2. LOVAZA [Concomitant]
  3. CRESTOR [Suspect]
     Route: 048
     Dates: end: 20110601
  4. VITAMIN B-12 [Concomitant]
  5. VITAMIN D [Concomitant]
     Dates: start: 20110401

REACTIONS (2)
  - MUSCULOSKELETAL PAIN [None]
  - TENDON RUPTURE [None]
